FAERS Safety Report 11674383 (Version 1)
Quarter: 2015Q4

REPORT INFORMATION
  Report Type: Spontaneous
  Country: US (occurrence: US)
  Receive Date: 20151028
  Receipt Date: 20151028
  Transmission Date: 20160304
  Serious: Yes (Other)
  Sender: FDA-Public Use
  Company Number: US-PFIZER INC-2015363785

PATIENT
  Age: 70 Year
  Sex: Female

DRUGS (4)
  1. ENALAPRIL [Concomitant]
     Active Substance: ENALAPRIL
     Dosage: UNK
  2. PROPANOLOL HCL [Suspect]
     Active Substance: PROPRANOLOL HYDROCHLORIDE
     Indication: ANEURYSM
     Dosage: 60 MG, 1X/DAY
     Route: 048
     Dates: start: 201506
  3. LASIX [Concomitant]
     Active Substance: FUROSEMIDE
     Dosage: UNK
  4. SPIRONOLACTONE. [Concomitant]
     Active Substance: SPIRONOLACTONE
     Dosage: UNK

REACTIONS (10)
  - Pruritus [Unknown]
  - Bite [Unknown]
  - Rash [Unknown]
  - Stevens-Johnson syndrome [Unknown]
  - Blister rupture [Unknown]
  - Pain of skin [Unknown]
  - Rash papular [Unknown]
  - Skin burning sensation [Unknown]
  - Back injury [Unknown]
  - Blister [Unknown]

NARRATIVE: CASE EVENT DATE: 201506
